FAERS Safety Report 16782009 (Version 3)
Quarter: 2019Q3

REPORT INFORMATION
  Report Type: Spontaneous
  Country: NO (occurrence: NO)
  Receive Date: 20190906
  Receipt Date: 20190926
  Transmission Date: 20191005
  Serious: Yes (Death, Hospitalization, Other)
  Sender: FDA-Public Use
  Company Number: NO-PFIZER INC-2019386926

PATIENT

DRUGS (11)
  1. NEVIRAPINE. [Suspect]
     Active Substance: NEVIRAPINE
     Dosage: UNK
  2. TRIATEC [RAMIPRIL] [Suspect]
     Active Substance: RAMIPRIL
     Dosage: UNK
     Route: 048
  3. CORDARONE [Suspect]
     Active Substance: AMIODARONE HYDROCHLORIDE
     Dosage: UNK
  4. BACTRIM [Suspect]
     Active Substance: SULFAMETHOXAZOLE\TRIMETHOPRIM
     Dosage: UNK
  5. METOPROLOL SUCCINATE. [Suspect]
     Active Substance: METOPROLOL SUCCINATE
     Dosage: UNK
     Route: 048
  6. ZIAGEN [Suspect]
     Active Substance: ABACAVIR SULFATE
     Dosage: 600 MG, 1X/DAY
     Dates: start: 201012
  7. ARANESP [Suspect]
     Active Substance: DARBEPOETIN ALFA
     Dosage: UNK
  8. EPIVIR [Suspect]
     Active Substance: LAMIVUDINE
     Dosage: UNK
     Dates: start: 201012
  9. NATRON [SODIUM BICARBONATE] [Suspect]
     Active Substance: SODIUM BICARBONATE
     Dosage: UNK
  10. AMLODIPINE BESILATE [Suspect]
     Active Substance: AMLODIPINE BESYLATE
     Dosage: UNK
  11. ETALPHA [Suspect]
     Active Substance: ALFACALCIDOL
     Dosage: UNK

REACTIONS (16)
  - Gastrointestinal haemorrhage [Fatal]
  - Tuberculosis [Fatal]
  - Ulcer [Fatal]
  - Genital rash [Fatal]
  - Kaposi^s sarcoma [Fatal]
  - Abscess [Fatal]
  - Cardiac failure [Fatal]
  - Hepatitis B [Fatal]
  - Musculoskeletal pain [Fatal]
  - Fluid retention [Fatal]
  - Synovitis [Fatal]
  - Pyrexia [Fatal]
  - HIV infection [Fatal]
  - Hypertension [Fatal]
  - Abdominal pain [Fatal]
  - Renal failure [Fatal]

NARRATIVE: CASE EVENT DATE: 2015
